FAERS Safety Report 25795935 (Version 2)
Quarter: 2025Q3

REPORT INFORMATION
  Report Type: Report from Study
  Country: IL (occurrence: IL)
  Receive Date: 20250912
  Receipt Date: 20250924
  Transmission Date: 20251021
  Serious: Yes (Other)
  Sender: NOVARTIS
  Company Number: IL-002147023-NVSC2025IL142195

PATIENT
  Age: 51 Year
  Sex: Female

DRUGS (3)
  1. KISQALI [Suspect]
     Active Substance: RIBOCICLIB SUCCINATE
     Indication: Breast cancer metastatic
     Dosage: 600 MG, QD
     Route: 048
     Dates: start: 20250617
  2. KISQALI [Suspect]
     Active Substance: RIBOCICLIB SUCCINATE
     Dosage: 400 MG, QD
     Route: 048
  3. LETROZOLE [Concomitant]
     Active Substance: LETROZOLE
     Indication: Product used for unknown indication
     Route: 065

REACTIONS (5)
  - Renal impairment [Not Recovered/Not Resolved]
  - Product dose omission in error [Unknown]
  - Headache [Not Recovered/Not Resolved]
  - Pyrexia [Not Recovered/Not Resolved]
  - Abdominal pain [Not Recovered/Not Resolved]

NARRATIVE: CASE EVENT DATE: 20250920
